FAERS Safety Report 8884657 (Version 2)
Quarter: 2014Q1

REPORT INFORMATION
  Report Type: Report from Study
  Country: DE (occurrence: DE)
  Receive Date: 20121104
  Receipt Date: 20140221
  Transmission Date: 20141002
  Serious: No
  Sender: FDA-Public Use
  Company Number: PHHY2012DE099618

PATIENT
  Sex: Male

DRUGS (7)
  1. FTY 720 [Suspect]
     Indication: MULTIPLE SCLEROSIS
     Dosage: 0.5 MG, QD
     Route: 048
     Dates: start: 20111102
  2. BACLOFEN [Concomitant]
  3. CITALOPRAM [Concomitant]
     Dosage: 40 MG, QD
     Dates: start: 20120305, end: 20120909
  4. VESIKUR [Concomitant]
     Dosage: 10 MG, UNK
     Dates: start: 201109
  5. CIPROFLOXACIN [Concomitant]
     Dosage: 1 DF, BID
     Dates: start: 20120127, end: 20120203
  6. FAMPYRA [Concomitant]
     Dosage: 10 MG, BID
     Dates: start: 20120329
  7. FOSTER                             /06206901/ [Concomitant]
     Dosage: 1 DF, TID
     Dates: start: 20120715

REACTIONS (1)
  - Asthma [Recovered/Resolved]
